FAERS Safety Report 11776343 (Version 2)
Quarter: 2019Q1

REPORT INFORMATION
  Report Type: Report from Study
  Country: CH (occurrence: CH)
  Receive Date: 20151125
  Receipt Date: 20190111
  Transmission Date: 20190417
  Serious: Yes (Other)
  Sender: FDA-Public Use
  Company Number: CH-ROCHE-1665400

PATIENT

DRUGS (2)
  1. CAPECITABINE. [Suspect]
     Active Substance: CAPECITABINE
     Indication: COLORECTAL CANCER METASTATIC
     Dosage: 1-14 EVERY 3 WEEKS
     Route: 048
  2. CETUXIMAB. [Suspect]
     Active Substance: CETUXIMAB
     Indication: COLORECTAL CANCER METASTATIC
     Route: 065

REACTIONS (10)
  - Dermatitis acneiform [Unknown]
  - Anaemia [Unknown]
  - Fatigue [Unknown]
  - Embolism [Unknown]
  - Gastrointestinal toxicity [Unknown]
  - Diarrhoea [Unknown]
  - Ulcerative keratitis [Unknown]
  - Palmar-plantar erythrodysaesthesia syndrome [Unknown]
  - Anaphylactic reaction [Unknown]
  - Hiccups [Unknown]
